FAERS Safety Report 24276364 (Version 1)
Quarter: 2024Q3

REPORT INFORMATION
  Report Type: Report from Study
  Country: US (occurrence: US)
  Receive Date: 20240903
  Receipt Date: 20240903
  Transmission Date: 20241016
  Serious: Yes (Hospitalization, Other)
  Sender: ABBVIE
  Company Number: US-ABBVIE-5901303

PATIENT
  Age: 52 Year
  Sex: Female

DRUGS (1)
  1. HUMIRA [Suspect]
     Active Substance: ADALIMUMAB
     Indication: Rheumatoid arthritis
     Dosage: CITRATE FREE
     Route: 058
     Dates: start: 20231017, end: 20240508

REACTIONS (4)
  - Pneumonia [Unknown]
  - Cardiac arrest [Unknown]
  - Immunodeficiency [Unknown]
  - Coronary artery thrombosis [Unknown]

NARRATIVE: CASE EVENT DATE: 20240501
